FAERS Safety Report 23369472 (Version 1)
Quarter: 2024Q1

REPORT INFORMATION
  Report Type: Report from Study
  Country: US (occurrence: US)
  Receive Date: 20240105
  Receipt Date: 20240105
  Transmission Date: 20240410
  Serious: Yes (Hospitalization)
  Sender: FDA-Public Use
  Company Number: US-APELLIS PHARMACEUTICALS-APL-2023-003475

PATIENT
  Age: 89 Year
  Sex: Male

DRUGS (1)
  1. PEGCETACOPLAN [Suspect]
     Active Substance: PEGCETACOPLAN
     Indication: Macular degeneration
     Dosage: RIGHT EYE

REACTIONS (16)
  - Pancreatitis acute [Unknown]
  - Drug hypersensitivity [Unknown]
  - Back pain [Recovered/Resolved]
  - Gait disturbance [Recovered/Resolved]
  - Abdominal pain [Recovered/Resolved]
  - Chest pain [Recovered/Resolved]
  - Oral pruritus [Recovered/Resolved]
  - Ear pruritus [Recovered/Resolved]
  - Throat irritation [Recovered/Resolved]
  - Pruritus [Recovered/Resolved]
  - Myalgia [Not Recovered/Not Resolved]
  - Arthralgia [Not Recovered/Not Resolved]
  - Neck pain [Recovered/Resolved]
  - Pain in extremity [Recovered/Resolved]
  - Pain [Unknown]
  - Insomnia [Recovered/Resolved]

NARRATIVE: CASE EVENT DATE: 20230717
